FAERS Safety Report 4655964-8 (Version None)
Quarter: 2005Q2

REPORT INFORMATION
  Report Type: 
  Country: None (occurrence: None)
  Receive Date: 20050505
  Receipt Date: 20050419
  Transmission Date: 20051028
  Serious: Yes (Hospitalization)
  Sender: FDA-Public Use
  Company Number: 800361

PATIENT
  Age: 63 Year
  Sex: Female

DRUGS (1)
  1. EXTRANEAL (EXTRANEAL (ICODEXTRIN 7.5%) SOLUTION FOR PD) [Suspect]
     Indication: PERITONEAL DIALYSIS
     Dosage: INTRAPERITONEAL
     Route: 033
     Dates: start: 20030916, end: 20040301

REACTIONS (2)
  - HAEMODIALYSIS [None]
  - PERITONITIS [None]
